FAERS Safety Report 5485121-7 (Version None)
Quarter: 2007Q4

REPORT INFORMATION
  Report Type: 
  Country: None (occurrence: None)
  Receive Date: 20071015
  Receipt Date: 20071004
  Transmission Date: 20080405
  Serious: Yes (Hospitalization, Other)
  Sender: FDA-Public Use
  Company Number: US-JNJFOC-20071001017

PATIENT
  Sex: Male
  Weight: 59.88 kg

DRUGS (14)
  1. TMC125 [Suspect]
     Indication: HIV INFECTION
     Route: 048
  2. PREZISTA [Suspect]
     Indication: HIV INFECTION
     Route: 048
  3. MK-0518 [Suspect]
     Indication: HIV INFECTION
     Route: 048
  4. TRUVADA [Suspect]
     Indication: HIV INFECTION
     Route: 048
  5. NORVIR [Suspect]
     Indication: HIV INFECTION
     Route: 048
  6. PREDNISONE [Concomitant]
     Indication: IMMUNOSUPPRESSION
     Route: 065
  7. CELLCEPT [Concomitant]
     Indication: IMMUNOSUPPRESSION
     Route: 065
  8. PROGRAF [Concomitant]
     Indication: IMMUNOSUPPRESSION
     Dosage: TAKEN ON MONDAY
     Route: 065
  9. BACTRIM [Concomitant]
     Indication: PROPHYLAXIS
     Route: 065
  10. AZITHROMYCIN [Concomitant]
     Indication: PROPHYLAXIS
     Dosage: TAKEN ON TUESDAYS
     Route: 065
  11. VALCYTE [Concomitant]
     Indication: PROPHYLAXIS
     Route: 065
  12. OMEPRAZOLE [Concomitant]
     Indication: PROPHYLAXIS
     Route: 065
  13. METOPROLOL SUCCINATE EXTENDED RELEASE [Concomitant]
     Indication: HYPERTENSION
     Route: 065
  14. MAGNESIUM SULFATE [Concomitant]
     Route: 065

REACTIONS (1)
  - LIVER FUNCTION TEST ABNORMAL [None]
